FAERS Safety Report 11316197 (Version 1)
Quarter: 2015Q3

REPORT INFORMATION
  Report Type: Spontaneous
  Country: US (occurrence: US)
  Receive Date: 20150728
  Receipt Date: 20150728
  Transmission Date: 20151125
  Serious: No
  Sender: FDA-Public Use
  Company Number: US-DRREDDYS-USA/USA/15/0047726

PATIENT
  Age: 37 Year
  Sex: Female
  Weight: 87.08 kg

DRUGS (2)
  1. DIFLUCAN [Concomitant]
     Active Substance: FLUCONAZOLE
     Indication: PRODUCT USED FOR UNKNOWN INDICATION
     Route: 065
  2. CIPROFLOXACIN. [Suspect]
     Active Substance: CIPROFLOXACIN
     Indication: URINARY TRACT INFECTION
     Route: 048
     Dates: start: 20150414, end: 20150423

REACTIONS (12)
  - Pruritus generalised [Unknown]
  - Burning sensation [Unknown]
  - Palpitations [Unknown]
  - Paraesthesia [Unknown]
  - Dizziness [Unknown]
  - Vomiting [Unknown]
  - Muscular weakness [Unknown]
  - Back pain [Unknown]
  - Pain in extremity [Unknown]
  - Feeling abnormal [Unknown]
  - Muscle spasms [Unknown]
  - Anxiety [Unknown]

NARRATIVE: CASE EVENT DATE: 20150424
